FAERS Safety Report 5657875-8 (Version None)
Quarter: 2008Q1

REPORT INFORMATION
  Report Type: 
  Country: None (occurrence: None)
  Receive Date: 20080305
  Receipt Date: 20080219
  Transmission Date: 20080703
  Serious: Yes (Death)
  Sender: FDA-Public Use
  Company Number: S08-SWI-00815-01

PATIENT
  Age: 55 Year
  Sex: Male

DRUGS (5)
  1. ESCITALOPRAM [Suspect]
     Indication: DEPRESSION
     Dosage: 30 MG QD PO
     Route: 048
     Dates: start: 20071129, end: 20071222
  2. METHADONE HCL [Suspect]
     Indication: MENTAL DISORDER
     Dates: end: 20071222
  3. LEXOTANIL (BROMAZEPAM) [Concomitant]
  4. OMEPRAZOLE [Concomitant]
  5. ASPEGIC 1000 [Concomitant]

REACTIONS (1)
  - SUDDEN CARDIAC DEATH [None]
